FAERS Safety Report 5067128-7 (Version None)
Quarter: 2006Q3

REPORT INFORMATION
  Report Type: 
  Country: None (occurrence: None)
  Receive Date: 20060727
  Receipt Date: 20060719
  Transmission Date: 20061208
  Serious: Yes (Other)
  Sender: FDA-Public Use
  Company Number: 225545

PATIENT
  Age: 64 Year
  Sex: Female

DRUGS (2)
  1. AVASTIN [Suspect]
     Indication: MACULAR DEGENERATION
     Dosage: 0.05 INTRAOCULAR
     Route: 031
     Dates: start: 20060510, end: 20060510
  2. BETADINE [Concomitant]

REACTIONS (13)
  - ABDOMINAL PAIN [None]
  - ANOREXIA [None]
  - CONTUSION [None]
  - COUGH [None]
  - DISCOMFORT [None]
  - EYE SWELLING [None]
  - HAEMATOCHEZIA [None]
  - HEADACHE [None]
  - HYPOAESTHESIA [None]
  - OCULAR HYPERAEMIA [None]
  - PAIN [None]
  - RHINORRHOEA [None]
  - SKIN HAEMORRHAGE [None]
